FAERS Safety Report 17562654 (Version 1)
Quarter: 2020Q1

REPORT INFORMATION
  Report Type: Spontaneous
  Country: FR (occurrence: FR)
  Receive Date: 20200319
  Receipt Date: 20200319
  Transmission Date: 20200409
  Serious: Yes (Hospitalization)
  Sender: FDA-Public Use
  Company Number: FR-MYLANLABS-2020M1028867

PATIENT
  Age: 68 Year
  Sex: Female
  Weight: 83 kg

DRUGS (1)
  1. IBUPROFEN. [Suspect]
     Active Substance: IBUPROFEN
     Indication: HEADACHE
     Dosage: UNK
     Route: 048
     Dates: start: 201911, end: 20191112

REACTIONS (2)
  - Bronchopneumopathy [Recovering/Resolving]
  - Disease complication [Recovering/Resolving]

NARRATIVE: CASE EVENT DATE: 201911
